FAERS Safety Report 24232138 (Version 1)
Quarter: 2024Q3

REPORT INFORMATION
  Report Type: Spontaneous
  Country: US (occurrence: US)
  Receive Date: 20240821
  Receipt Date: 20240821
  Transmission Date: 20241016
  Serious: No
  Sender: ABBVIE
  Company Number: US-ABBVIE-5883104

PATIENT
  Sex: Female
  Weight: 50 kg

DRUGS (2)
  1. LINZESS [Suspect]
     Active Substance: LINACLOTIDE
     Indication: Irritable bowel syndrome
     Dosage: 145 MICROGRAM, START DATE TEXT: 2015 OR 2016
     Route: 048
  2. LINZESS [Suspect]
     Active Substance: LINACLOTIDE
     Indication: Irritable bowel syndrome
     Dosage: 290 MG, START DATE TEXT: 2015 OR 2016
     Route: 048

REACTIONS (6)
  - Muscle spasms [Recovered/Resolved]
  - Constipation [Unknown]
  - Therapeutic product effect delayed [Not Recovered/Not Resolved]
  - Drug ineffective [Recovered/Resolved]
  - Diarrhoea [Not Recovered/Not Resolved]
  - Abdominal distension [Recovered/Resolved]

NARRATIVE: CASE EVENT DATE: 20150101
